FAERS Safety Report 25563099 (Version 1)
Quarter: 2025Q3

REPORT INFORMATION
  Report Type: Spontaneous
  Country: EU (occurrence: EU)
  Receive Date: 20250716
  Receipt Date: 20250716
  Transmission Date: 20251020
  Serious: Yes (Life-Threatening, Hospitalization, Other)
  Sender: BAXTER
  Company Number: None

PATIENT
  Age: 61 Year
  Sex: Male

DRUGS (4)
  1. BORTEZOMIB [Suspect]
     Active Substance: BORTEZOMIB
     Indication: Plasma cell myeloma
     Route: 042
     Dates: start: 20250201, end: 20250217
  2. BORTEZOMIB [Suspect]
     Active Substance: BORTEZOMIB
     Route: 042
     Dates: start: 20250317, end: 20250324
  3. DARZALEX [Suspect]
     Active Substance: DARATUMUMAB
     Indication: Plasma cell myeloma
     Route: 042
     Dates: start: 20250201, end: 20250303
  4. DEXAMETHASONE [Suspect]
     Active Substance: DEXAMETHASONE
     Indication: Plasma cell myeloma
     Route: 042
     Dates: start: 20250201, end: 20250324

REACTIONS (3)
  - Campylobacter colitis [Recovered/Resolved]
  - Clostridium difficile colitis [Recovered/Resolved]
  - Hypovolaemic shock [Recovered/Resolved]

NARRATIVE: CASE EVENT DATE: 20250331
